FAERS Safety Report 6022251-5 (Version None)
Quarter: 2008Q4

REPORT INFORMATION
  Report Type: 
  Country: None (occurrence: None)
  Receive Date: 20081229
  Receipt Date: 20081215
  Transmission Date: 20090506
  Serious: Yes (Other)
  Sender: FDA-Public Use
  Company Number: NL-PFIZER INC-2008151284

PATIENT

DRUGS (9)
  1. DOSTINEX [Suspect]
     Indication: PITUITARY TUMOUR BENIGN
     Dosage: UNK
     Route: 048
     Dates: start: 20040101, end: 20080801
  2. ALL OTHER THERAPEUTIC PRODUCTS [Concomitant]
  3. BRICANYL [Concomitant]
  4. ARTHROTEC [Concomitant]
     Route: 048
  5. SILICONE PRODUCTS [Concomitant]
     Route: 061
  6. DYAZIDE [Concomitant]
     Route: 048
  7. ALL OTHER THERAPEUTIC PRODUCTS [Concomitant]
     Route: 061
  8. HYDROCORTISONE [Concomitant]
     Route: 048
  9. ALL OTHER THERAPEUTIC PRODUCTS [Concomitant]
     Route: 048

REACTIONS (11)
  - ACTIVITIES OF DAILY LIVING IMPAIRED [None]
  - ALOPECIA [None]
  - AMNESIA [None]
  - COELIAC DISEASE [None]
  - DRUG WITHDRAWAL SYNDROME [None]
  - ENDOMETRIOSIS [None]
  - FALL [None]
  - GENERALISED ANXIETY DISORDER [None]
  - PANIC ATTACK [None]
  - SLEEP APNOEA SYNDROME [None]
  - WEIGHT INCREASED [None]
